FAERS Safety Report 5102393-9 (Version None)
Quarter: 2006Q3

REPORT INFORMATION
  Report Type: 
  Country: None (occurrence: None)
  Receive Date: 20060912
  Receipt Date: 20060104
  Transmission Date: 20061208
  Serious: Yes (Disabling)
  Sender: FDA-Public Use
  Company Number: FR-AVENTIS-200610066FR

PATIENT
  Age: 60 Year
  Sex: Male

DRUGS (8)
  1. PYOSTACINE [Suspect]
     Indication: OSTEOMYELITIS
     Route: 048
     Dates: start: 20050810, end: 20051119
  2. PYOSTACINE [Suspect]
     Indication: DEVICE RELATED INFECTION
     Route: 048
     Dates: start: 20050810, end: 20051119
  3. RIFADIN [Suspect]
     Indication: OSTEOMYELITIS
     Route: 048
     Dates: start: 20050810, end: 20051119
  4. RIFADIN [Suspect]
     Indication: CARDIAC VALVE DISEASE
     Route: 048
     Dates: start: 20050810, end: 20051119
  5. PARACETAMOL [Concomitant]
  6. LANZOR [Concomitant]
  7. GAVISCON [Concomitant]
  8. CARTEOLOL HCL [Concomitant]
     Indication: GLAUCOMA
     Dates: end: 20040101

REACTIONS (11)
  - ABDOMINAL PAIN [None]
  - ABDOMINAL PAIN UPPER [None]
  - CHROMATURIA [None]
  - CONDITION AGGRAVATED [None]
  - DEAFNESS BILATERAL [None]
  - DIARRHOEA [None]
  - FAECES DISCOLOURED [None]
  - GASTROINTESTINAL DISORDER [None]
  - NAUSEA [None]
  - SKIN REACTION [None]
  - VISUAL FIELD DEFECT [None]
